FAERS Safety Report 9037947 (Version 2)
Quarter: 2013Q3

REPORT INFORMATION
  Report Type: Spontaneous
  Country: US (occurrence: US)
  Receive Date: 20130129
  Receipt Date: 20130731
  Transmission Date: 20140515
  Serious: Yes (Other)
  Sender: FDA-Public Use
  Company Number: PHEH2013US001992

PATIENT
  Sex: Male

DRUGS (3)
  1. TEGRETOL-XR [Suspect]
     Dosage: 2 DF, BID
  2. TEGRETOL-XR [Suspect]
     Dosage: 6 DF, DAILY (5-6 DF, DAILY)
  3. TYLENOL [Concomitant]

REACTIONS (7)
  - Intervertebral disc protrusion [Unknown]
  - Pain in extremity [Unknown]
  - Hypoaesthesia [Unknown]
  - Musculoskeletal pain [Unknown]
  - Road traffic accident [Unknown]
  - Convulsion [Unknown]
  - Incorrect dose administered [Unknown]
